FAERS Safety Report 18246547 (Version 1)
Quarter: 2020Q3

REPORT INFORMATION
  Report Type: Spontaneous
  Country: US (occurrence: US)
  Receive Date: 20200909
  Receipt Date: 20200909
  Transmission Date: 20201103
  Serious: No
  Sender: FDA-Public Use
  Company Number: US-JNJFOC-20200906023

PATIENT
  Age: 39 Year
  Sex: Female
  Weight: 66.68 kg

DRUGS (2)
  1. STELARA [Suspect]
     Active Substance: USTEKINUMAB
     Indication: CROHN^S DISEASE
     Route: 058
     Dates: start: 201904
  2. STELARA [Suspect]
     Active Substance: USTEKINUMAB

REACTIONS (1)
  - Drug level decreased [Unknown]
